FAERS Safety Report 23075740 (Version 4)
Quarter: 2023Q4

REPORT INFORMATION
  Report Type: Report from Study
  Country: KR (occurrence: KR)
  Receive Date: 20231017
  Receipt Date: 20231129
  Transmission Date: 20240109
  Serious: Yes (Hospitalization)
  Sender: FDA-Public Use
  Company Number: KR-PFIZER INC-202300317376

PATIENT
  Age: 63 Year
  Sex: Male
  Weight: 64.2 kg

DRUGS (4)
  1. ELRANATAMAB [Suspect]
     Active Substance: ELRANATAMAB
     Indication: Plasma cell myeloma
     Dosage: 76 MG, EVERY 2 WEEKS
     Route: 058
     Dates: start: 20230920, end: 20230920
  2. LEVOFLOXACIN [Concomitant]
     Active Substance: LEVOFLOXACIN
     Indication: Prophylaxis
     Dosage: 500 MG, 1X/DAY
     Route: 048
     Dates: start: 20230104
  3. ZOYLEX [ACICLOVIR] [Concomitant]
     Indication: Antiviral prophylaxis
     Dosage: 400 MG, 1X/DAY
     Route: 048
     Dates: start: 20230104
  4. ZOYLEX [ACICLOVIR] [Concomitant]
     Dosage: 400 MG, 1X/DAY
     Route: 048
     Dates: start: 20230809

REACTIONS (1)
  - Cytomegalovirus infection reactivation [Recovered/Resolved]

NARRATIVE: CASE EVENT DATE: 20230927
